FAERS Safety Report 7367751-0 (Version None)
Quarter: 2011Q1

REPORT INFORMATION
  Report Type: 
  Country: None (occurrence: None)
  Receive Date: 20110304
  Receipt Date: 20110225
  Transmission Date: 20110831
  Serious: Yes (Hospitalization)
  Sender: FDA-Public Use
  Company Number: 2011SP001419

PATIENT
  Age: 59 Year
  Sex: Male

DRUGS (1)
  1. ONCOTICE [Suspect]
     Indication: BLADDER CANCER
     Dosage: INVES
     Route: 011

REACTIONS (3)
  - REITER'S SYNDROME [None]
  - CONJUNCTIVITIS [None]
  - URETHRITIS [None]
